FAERS Safety Report 4597286-X (Version None)
Quarter: 2005Q1

REPORT INFORMATION
  Report Type: 
  Country: None (occurrence: None)
  Receive Date: 20050303
  Receipt Date: 20040302
  Transmission Date: 20050727
  Serious: No
  Sender: FDA-Public Use
  Company Number: US-GLAXOSMITHKLINE-A0500716A

PATIENT
  Age: 73 Year
  Sex: Male

DRUGS (3)
  1. DEXEDRINE [Suspect]
     Indication: ILL-DEFINED DISORDER
     Dosage: 15MG FOUR TIMES PER DAY
     Route: 048
  2. WATER PILL [Concomitant]
  3. KLONOPIN [Concomitant]

REACTIONS (1)
  - SLUGGISHNESS [None]
